FAERS Safety Report 6153515-2 (Version None)
Quarter: 2009Q2

REPORT INFORMATION
  Report Type: 
  Country: None (occurrence: None)
  Receive Date: 20090413
  Receipt Date: 20090402
  Transmission Date: 20091009
  Serious: Yes (Other)
  Sender: FDA-Public Use
  Company Number: PHHY2009NZ12636

PATIENT
  Sex: Male

DRUGS (2)
  1. CLOZARIL [Suspect]
     Indication: SCHIZOPHRENIA
     Dosage: 87.5 MG/DAY
     Dates: start: 20090323
  2. OLANZAPINE [Concomitant]
     Dosage: 40 MG

REACTIONS (9)
  - BLOOD URINE PRESENT [None]
  - C-REACTIVE PROTEIN INCREASED [None]
  - MONOCYTE COUNT INCREASED [None]
  - MYOCARDITIS [None]
  - NEUTROPHIL COUNT INCREASED [None]
  - PYREXIA [None]
  - TACHYCARDIA [None]
  - URINARY TRACT INFECTION [None]
  - WHITE BLOOD CELLS URINE [None]
